FAERS Safety Report 8171062-3 (Version None)
Quarter: 2012Q1

REPORT INFORMATION
  Report Type: 
  Country: None (occurrence: None)
  Receive Date: 20120228
  Receipt Date: 20120214
  Transmission Date: 20120608
  Serious: Yes (Hospitalization)
  Sender: FDA-Public Use
  Company Number: PHEH2012US003934

PATIENT
  Sex: Female

DRUGS (1)
  1. GLEEVEC [Suspect]
     Indication: COLON CANCER
     Dosage: 400 MG, DAILY
     Route: 048
     Dates: start: 20100309

REACTIONS (2)
  - FLUID RETENTION [None]
  - BRONCHITIS [None]
